FAERS Safety Report 8291200-1 (Version None)
Quarter: 2012Q2

REPORT INFORMATION
  Report Type: 
  Country: None (occurrence: None)
  Receive Date: 20120413
  Receipt Date: 20120328
  Transmission Date: 20120825
  Serious: Yes (Death)
  Sender: FDA-Public Use
  Company Number: UTC-016496

PATIENT
  Age: 79 Year
  Sex: Female
  Weight: 70.9 kg

DRUGS (2)
  1. TYVASO [Suspect]
     Indication: COR PULMONALE CHRONIC
     Dosage: (72 MCG), INHALATION
     Route: 055
     Dates: start: 20091229
  2. DIURETICS (DIURETICS) [Concomitant]

REACTIONS (1)
  - DEATH [None]
